FAERS Safety Report 10244460 (Version 1)
Quarter: 2014Q2

REPORT INFORMATION
  Report Type: Spontaneous
  Country: GB (occurrence: None)
  Receive Date: 20140616
  Receipt Date: 20140616
  Transmission Date: 20141212
  Serious: Yes (Disabling)
  Sender: FDA-Public Use
  Company Number: AUR-APL-2014-06250

PATIENT
  Age: 30 Year
  Sex: Female
  Weight: 77 kg

DRUGS (2)
  1. OLANZAPINE (OLANZAPINE) [Suspect]
     Indication: SCHIZOAFFECTIVE DISORDER
     Route: 048
     Dates: start: 2006, end: 2014
  2. SERTRALINE (SERTRALINE) [Concomitant]

REACTIONS (2)
  - Cognitive disorder [None]
  - Apathy [None]
